FAERS Safety Report 7454813-2 (Version None)
Quarter: 2011Q2

REPORT INFORMATION
  Report Type: 
  Country: None (occurrence: None)
  Receive Date: 20110503
  Receipt Date: 20100603
  Transmission Date: 20111010
  Serious: No
  Sender: FDA-Public Use
  Company Number: US-PFIZER INC-2010060089

PATIENT
  Sex: Female
  Weight: 58.957 kg

DRUGS (5)
  1. ADDERALL 10 [Concomitant]
     Indication: ATTENTION DEFICIT/HYPERACTIVITY DISORDER
     Dosage: UNK
  2. FLOVENT [Concomitant]
     Indication: ASTHMA
     Dosage: UNK
  3. DEPO-PROVERA [Suspect]
     Indication: CONTRACEPTION
     Dosage: 150 MG, UNK
     Route: 030
     Dates: start: 20091101
  4. MONTELUKAST [Concomitant]
     Indication: ASTHMA
     Dosage: UNK
  5. ZYRTEC [Concomitant]
     Indication: ASTHMA
     Dosage: UNK

REACTIONS (5)
  - INCORRECT ROUTE OF DRUG ADMINISTRATION [None]
  - DIZZINESS [None]
  - NAUSEA [None]
  - HEADACHE [None]
  - INCORRECT DOSE ADMINISTERED [None]
